FAERS Safety Report 4338275-X (Version None)
Quarter: 2004Q2

REPORT INFORMATION
  Report Type: 
  Country: None (occurrence: None)
  Receive Date: 20040409
  Receipt Date: 20040324
  Transmission Date: 20050107
  Serious: Yes (Hospitalization)
  Sender: FDA-Public Use
  Company Number: F04200400085

PATIENT
  Age: 74 Year
  Sex: Male

DRUGS (2)
  1. ARIXTRA [Suspect]
     Indication: KNEE ARTHROPLASTY
     Dosage: 2.5 MG OD, SUBCUTANEOUS
     Route: 058
     Dates: start: 20030516, end: 20030518
  2. ARIXTRA [Suspect]
     Indication: THROMBOSIS PROPHYLAXIS
     Dosage: 2.5 MG OD, SUBCUTANEOUS
     Route: 058
     Dates: start: 20030516, end: 20030518

REACTIONS (1)
  - SOFT TISSUE HAEMORRHAGE [None]
